FAERS Safety Report 7597275-7 (Version None)
Quarter: 2011Q3

REPORT INFORMATION
  Report Type: 
  Country: None (occurrence: None)
  Receive Date: 20110708
  Receipt Date: 20110207
  Transmission Date: 20111222
  Serious: No
  Sender: FDA-Public Use
  Company Number: US-GLAXOSMITHKLINE-A0912266A

PATIENT
  Age: 76 Year
  Sex: Male

DRUGS (8)
  1. FLOVENT [Suspect]
     Indication: BRONCHITIS CHRONIC
     Dosage: 2PUFF TWICE PER DAY
     Route: 055
  2. SINGULAIR [Concomitant]
  3. VENTOLIN HFA [Concomitant]
  4. ASPIRIN [Concomitant]
  5. MULTI-VITAMIN [Concomitant]
  6. ATENOLOL [Concomitant]
  7. PREDNISONE [Concomitant]
  8. CRESTOR [Concomitant]

REACTIONS (2)
  - DYSPNOEA [None]
  - PRODUCT QUALITY ISSUE [None]
